FAERS Safety Report 10032315 (Version 1)
Quarter: 2014Q1

REPORT INFORMATION
  Report Type: Spontaneous
  Country: IT (occurrence: IT)
  Receive Date: 20140324
  Receipt Date: 20140324
  Transmission Date: 20141002
  Serious: Yes (Death, Other)
  Sender: FDA-Public Use
  Company Number: IT-PFIZER INC-2014080073

PATIENT
  Age: 61 Year
  Sex: Male

DRUGS (2)
  1. SUNITINIB MALATE [Suspect]
     Indication: GASTROINTESTINAL STROMAL TUMOUR
     Dosage: 37.5 MG, DAILY
     Dates: start: 200802, end: 2011
  2. SUNITINIB MALATE [Suspect]
     Dosage: 37.5 MG, DAILY
     Dates: start: 201108

REACTIONS (5)
  - Disease progression [Fatal]
  - Gastrointestinal stromal tumour [Fatal]
  - Renal abscess [Unknown]
  - Pyrexia [Unknown]
  - C-reactive protein increased [Unknown]
